FAERS Safety Report 8443498-4 (Version None)
Quarter: 2012Q2

REPORT INFORMATION
  Report Type: 
  Country: None (occurrence: None)
  Receive Date: 20120618
  Receipt Date: 20120607
  Transmission Date: 20120825
  Serious: Yes (Other)
  Sender: FDA-Public Use
  Company Number: CO-JNJFOC-20120604813

PATIENT
  Age: 49 Year
  Sex: Male

DRUGS (5)
  1. REMICADE [Suspect]
     Indication: PSORIASIS
     Route: 042
  2. CLEMASTINE FUMARATE [Concomitant]
     Route: 065
  3. REMICADE [Suspect]
     Route: 042
     Dates: start: 20120512
  4. REMICADE [Suspect]
     Route: 042
     Dates: start: 20120526
  5. SOLU-CORTEF [Concomitant]
     Route: 065

REACTIONS (2)
  - RESPIRATORY DISTRESS [None]
  - INFUSION RELATED REACTION [None]
